FAERS Safety Report 14911921 (Version 1)
Quarter: 2018Q2

REPORT INFORMATION
  Report Type: Spontaneous
  Country: US (occurrence: US)
  Receive Date: 20180430
  Receipt Date: 20180430
  Transmission Date: 20180711
  Serious: Yes (Disabling)
  Sender: FDA-Public Use
  Company Number: None

PATIENT
  Age: 62 Year
  Sex: Female
  Weight: 52.2 kg

DRUGS (2)
  1. VALIUM [Suspect]
     Active Substance: DIAZEPAM
  2. LIBRIUM [Suspect]
     Active Substance: CHLORDIAZEPOXIDE HYDROCHLORIDE
     Indication: STRESS
     Dates: start: 20090401, end: 20140503

REACTIONS (8)
  - Speech disorder [None]
  - Abdominal discomfort [None]
  - Musculoskeletal disorder [None]
  - Unevaluable event [None]
  - Tremor [None]
  - Dizziness [None]
  - Dyspnoea [None]
  - Gait disturbance [None]

NARRATIVE: CASE EVENT DATE: 20090401
